FAERS Safety Report 9114397 (Version 4)
Quarter: 2013Q2

REPORT INFORMATION
  Report Type: Spontaneous
  Country: US (occurrence: US)
  Receive Date: 20130209
  Receipt Date: 20130517
  Transmission Date: 20140414
  Serious: Yes (Hospitalization)
  Sender: FDA-Public Use
  Company Number: US-B.I. PHARMACEUTICALS,INC./RIDGEFIELD-2013-BI-03510BP

PATIENT
  Age: 50 Year
  Sex: Male
  Weight: 99.79 kg

DRUGS (18)
  1. PRADAXA [Suspect]
     Indication: ANTICOAGULANT THERAPY
     Dosage: 150 MG
     Dates: start: 20110415, end: 20120304
  2. PRADAXA [Suspect]
     Indication: ATRIAL FIBRILLATION
  3. PRILOSEC [Concomitant]
     Dosage: 20 MG
  4. ASPIRIN [Concomitant]
     Dosage: 81 MG
  5. COREG [Concomitant]
     Dosage: 12.5 MG
  6. FENOFIBRATE [Concomitant]
     Dosage: 67 MG
  7. LASIX [Concomitant]
     Dosage: 160 MG
  8. LISINOPRIL [Concomitant]
     Dosage: 5 MG
  9. COLACE [Concomitant]
     Dosage: 100 MG
  10. KCL [Concomitant]
     Dosage: 20 MEQ
  11. SIMVASTATIN [Concomitant]
     Dosage: 20 MG
  12. SPIRONOLACTONE [Concomitant]
     Dosage: 50 MG
  13. NEURONTIN [Concomitant]
     Dosage: 300 MG
  14. DIGOXIN [Concomitant]
     Dosage: 0.125 MG
  15. LANTUS [Concomitant]
     Dosage: 100 U
  16. FLEXPEN NOVOLOG [Concomitant]
     Dosage: 30 U
  17. O2 [Concomitant]
  18. PREVACID [Concomitant]
     Dosage: 30 MG

REACTIONS (1)
  - Lower gastrointestinal haemorrhage [Recovered/Resolved]
